FAERS Safety Report 16575564 (Version 3)
Quarter: 2019Q4

REPORT INFORMATION
  Report Type: Spontaneous
  Country: GR (occurrence: GR)
  Receive Date: 20190716
  Receipt Date: 20191209
  Transmission Date: 20200122
  Serious: Yes (Hospitalization, Other)
  Sender: FDA-Public Use
  Company Number: GR-AUROBINDO-AUR-APL-2019-040377

PATIENT
  Age: 15 Month
  Sex: Female

DRUGS (1)
  1. AMOXICILLIN+CLAVULANIC ACID [Suspect]
     Active Substance: AMOXICILLIN\CLAVULANIC ACID
     Indication: OTITIS MEDIA ACUTE
     Dosage: UNK
     Route: 048

REACTIONS (8)
  - Rash [Recovered/Resolved]
  - Vasculitis [Unknown]
  - Rash maculo-papular [Recovered/Resolved]
  - Blister [Recovered/Resolved]
  - Leukocytosis [Recovered/Resolved]
  - Skin discolouration [Recovered/Resolved]
  - Urticarial vasculitis [Recovered/Resolved]
  - Pruritus [Unknown]
